FAERS Safety Report 9803958 (Version 1)
Quarter: 2014Q1

REPORT INFORMATION
  Report Type: Spontaneous
  Country: US (occurrence: US)
  Receive Date: 20140108
  Receipt Date: 20140108
  Transmission Date: 20141002
  Serious: Yes (Other)
  Sender: FDA-Public Use
  Company Number: US-BAYER-2014-000270

PATIENT
  Age: 78 Year
  Sex: Male

DRUGS (2)
  1. ACETYLSALICYLIC ACID({=100 MG) [Suspect]
     Route: 048
  2. WARFARIN [Interacting]
     Route: 048

REACTIONS (3)
  - Haematoma [None]
  - Shock haemorrhagic [None]
  - Labelled drug-drug interaction medication error [None]
